FAERS Safety Report 9856635 (Version 2)
Quarter: 2014Q1

REPORT INFORMATION
  Report Type: Spontaneous
  Country: US (occurrence: US)
  Receive Date: 20140130
  Receipt Date: 20140130
  Transmission Date: 20141002
  Serious: Yes (Hospitalization)
  Sender: FDA-Public Use
  Company Number: US-GLAXOSMITHKLINE-A0789983A

PATIENT
  Age: 49 Year
  Sex: Female

DRUGS (1)
  1. AVANDIA [Suspect]
     Indication: DIABETES MELLITUS
     Dosage: 4MG PER DAY
     Route: 048
     Dates: start: 200106, end: 20020223

REACTIONS (5)
  - Cardiac failure congestive [Not Recovered/Not Resolved]
  - Hypertension [Unknown]
  - Renal failure [Unknown]
  - Eye haemorrhage [Unknown]
  - Blindness [Unknown]
